FAERS Safety Report 8351165-0 (Version None)
Quarter: 2012Q2

REPORT INFORMATION
  Report Type: 
  Country: None (occurrence: None)
  Receive Date: 20120510
  Receipt Date: 20120508
  Transmission Date: 20120825
  Serious: No
  Sender: FDA-Public Use
  Company Number: US-PFIZER INC-2012098191

PATIENT
  Sex: Female

DRUGS (2)
  1. LYRICA [Suspect]
     Indication: FIBROMYALGIA
     Dosage: 75 MG, UNK
     Route: 048
     Dates: start: 20120101
  2. LYRICA [Suspect]
     Dosage: 75 MG, UNK

REACTIONS (11)
  - MALAISE [None]
  - DRUG INEFFECTIVE [None]
  - SWOLLEN TONGUE [None]
  - DEPRESSION [None]
  - EYE SWELLING [None]
  - DIARRHOEA [None]
  - GASTROENTERITIS VIRAL [None]
  - OEDEMA PERIPHERAL [None]
  - FEELING ABNORMAL [None]
  - CRYING [None]
  - DRY MOUTH [None]
